FAERS Safety Report 5850790-6 (Version None)
Quarter: 2008Q3

REPORT INFORMATION
  Report Type: 
  Country: None (occurrence: None)
  Receive Date: 20080819
  Receipt Date: 20080819
  Transmission Date: 20090109
  Serious: Yes (Hospitalization)
  Sender: FDA-Public Use
  Company Number: None

PATIENT
  Age: 63 Year
  Sex: Female
  Weight: 118 kg

DRUGS (1)
  1. AMILORIDE HYDROCHLORIDE [Suspect]
     Dosage: 10 MG EVERY DAY PO
     Route: 048
     Dates: start: 20080520, end: 20080611

REACTIONS (3)
  - BRADYCARDIA [None]
  - ELECTROCARDIOGRAM CHANGE [None]
  - HYPERKALAEMIA [None]
